FAERS Safety Report 7676144-8 (Version None)
Quarter: 2011Q3

REPORT INFORMATION
  Report Type: 
  Country: None (occurrence: None)
  Receive Date: 20110811
  Receipt Date: 20110801
  Transmission Date: 20111222
  Serious: Yes (Other)
  Sender: FDA-Public Use
  Company Number: US-JNJFOC-20110801811

PATIENT
  Sex: Female
  Weight: 48.99 kg

DRUGS (8)
  1. FENTANYL [Suspect]
     Route: 062
     Dates: end: 20110601
  2. DURAGESIC-100 [Suspect]
     Indication: BACK PAIN
     Route: 062
     Dates: start: 20110701
  3. CLIMARA [Concomitant]
     Indication: OESTROGEN REPLACEMENT THERAPY
     Route: 062
  4. FIORICET [Concomitant]
     Indication: MIGRAINE
     Dosage: 5/325MG
     Route: 048
  5. PERCOCET [Concomitant]
     Indication: BREAKTHROUGH PAIN
     Dosage: 5/325MG
     Route: 048
  6. FENTANYL [Suspect]
     Indication: BACK PAIN
     Route: 062
     Dates: start: 20050101
  7. VITAMIN D [Concomitant]
     Indication: VITAMIN D DEFICIENCY
     Route: 048
  8. FENTANYL-100 [Suspect]
     Indication: BACK PAIN
     Route: 062
     Dates: start: 20110601, end: 20110701

REACTIONS (9)
  - POOR QUALITY SLEEP [None]
  - FEAR [None]
  - MALAISE [None]
  - SOMNOLENCE [None]
  - BACK PAIN [None]
  - DRUG EFFECT DECREASED [None]
  - PRODUCT QUALITY ISSUE [None]
  - NAUSEA [None]
  - SKIN CANCER [None]
